FAERS Safety Report 23165415 (Version 1)
Quarter: 2023Q4

REPORT INFORMATION
  Report Type: Report from Study
  Country: US (occurrence: US)
  Receive Date: 20231109
  Receipt Date: 20231109
  Transmission Date: 20240110
  Serious: Yes (Other)
  Sender: FDA-Public Use
  Company Number: US-MYLANLABS-2023M1119584

PATIENT

DRUGS (1)
  1. METHOTREXATE [Suspect]
     Active Substance: METHOTREXATE
     Indication: Osteomyelitis chronic
     Dosage: UNK
     Route: 065

REACTIONS (3)
  - Spinal fracture [Unknown]
  - Compression fracture [Unknown]
  - Off label use [Unknown]
